FAERS Safety Report 11387990 (Version 3)
Quarter: 2015Q3

REPORT INFORMATION
  Report Type: Spontaneous
  Country: US (occurrence: US)
  Receive Date: 20150817
  Receipt Date: 20150827
  Transmission Date: 20151125
  Serious: Yes (Hospitalization)
  Sender: FDA-Public Use
  Company Number: US-GLAXOSMITHKLINE-US2015GSK103818

PATIENT
  Age: 73 Year
  Sex: Female
  Weight: 52.15 kg

DRUGS (11)
  1. ECOTRIN [Concomitant]
     Active Substance: ASPIRIN
  2. ZINC SULFATE [Concomitant]
     Active Substance: ZINC SULFATE\ZINC SULFATE ANHYDROUS
  3. ASPIRIN. [Concomitant]
     Active Substance: ASPIRIN
  4. VOTRIENT [Suspect]
     Active Substance: PAZOPANIB HYDROCHLORIDE
     Indication: BONE CANCER
     Dosage: 800 MG, QD
     Route: 048
     Dates: start: 20150603
  5. VOTRIENT [Suspect]
     Active Substance: PAZOPANIB HYDROCHLORIDE
     Indication: LUNG NEOPLASM MALIGNANT
     Dosage: 800 UNK, UNK
     Route: 048
     Dates: start: 20150615
  6. ZOFRAN [Concomitant]
     Active Substance: ONDANSETRON HYDROCHLORIDE
  7. LEVOTHYROXINE. [Concomitant]
     Active Substance: LEVOTHYROXINE
  8. SIMVASTATIN. [Concomitant]
     Active Substance: SIMVASTATIN
  9. TRAMADOL. [Concomitant]
     Active Substance: TRAMADOL
  10. GABAPENTIN. [Concomitant]
     Active Substance: GABAPENTIN
  11. CRANBERRY. [Concomitant]
     Active Substance: CRANBERRY

REACTIONS (7)
  - Blood sodium decreased [Recovered/Resolved]
  - Drug ineffective [Unknown]
  - Decreased appetite [Unknown]
  - Nausea [Unknown]
  - Weight decreased [Unknown]
  - Cough [Unknown]
  - Chest discomfort [Unknown]

NARRATIVE: CASE EVENT DATE: 2015
